FAERS Safety Report 8438595-3 (Version None)
Quarter: 2012Q2

REPORT INFORMATION
  Report Type: 
  Country: None (occurrence: None)
  Receive Date: 20120615
  Receipt Date: 20120612
  Transmission Date: 20120825
  Serious: No
  Sender: FDA-Public Use
  Company Number: US-PFIZER INC-2012111742

PATIENT
  Sex: Female
  Weight: 61.224 kg

DRUGS (6)
  1. LEVOTHYROXINE [Concomitant]
     Dosage: 50 UG, 1X/DAY
  2. LORAZEPAM [Concomitant]
     Dosage: 1 MG, 2X/DAY
  3. LYRICA [Suspect]
     Indication: NEURALGIA
     Dosage: 50 MG, 1X/DAY
     Route: 048
     Dates: start: 20120101
  4. TRAMADOL [Concomitant]
     Dosage: 50 MG, 2X/DAY
  5. OMEPRAZOLE [Concomitant]
     Dosage: 20 MG, 1X/DAY
  6. LITHIUM [Concomitant]
     Dosage: 300 MG, 2X/DAY

REACTIONS (2)
  - SOMNOLENCE [None]
  - DRUG INTOLERANCE [None]
